FAERS Safety Report 7295821-4 (Version None)
Quarter: 2011Q1

REPORT INFORMATION
  Report Type: 
  Country: None (occurrence: None)
  Receive Date: 20110211
  Receipt Date: 20110211
  Transmission Date: 20110831
  Serious: Yes (Disabling)
  Sender: FDA-Public Use
  Company Number: None

PATIENT
  Age: 57 Year
  Sex: Female
  Weight: 68.0396 kg

DRUGS (2)
  1. NORTRIPTYLINE HCL [Suspect]
     Indication: DEPRESSION
     Dosage: 3 X  50MG DAILY ORAL
     Route: 048
     Dates: start: 20090101
  2. NORTRIPTYLINE HCL [Suspect]
     Indication: DEPRESSION
     Dosage: 3 X  50MG DAILY ORAL
     Route: 048
     Dates: start: 20110111

REACTIONS (1)
  - CARDIAC FAILURE CONGESTIVE [None]
